FAERS Safety Report 6548834-1 (Version None)
Quarter: 2010Q1

REPORT INFORMATION
  Report Type: 
  Country: None (occurrence: None)
  Receive Date: 20100124
  Receipt Date: 20091228
  Transmission Date: 20100710
  Serious: No
  Sender: FDA-Public Use
  Company Number: US-ALLERGAN-0917658US

PATIENT
  Sex: Male

DRUGS (7)
  1. RESTASIS [Suspect]
     Indication: DRY EYE
     Dosage: 1 GTT, BID
     Route: 047
     Dates: start: 20091224
  2. ATENOLOL [Concomitant]
     Dosage: 50 MG, UNKNOWN
  3. ATACAND [Concomitant]
     Dosage: 8 MG, UNKNOWN
  4. ASPIRIN [Concomitant]
     Dosage: UNK
  5. CADUET [Concomitant]
     Dosage: UNK
  6. AMBIEN [Concomitant]
     Dosage: 10 MG, UNKNOWN
  7. TRIAMTERENE AND HYDROCHLOROTHIAZIDE [Concomitant]
     Dosage: UNK

REACTIONS (1)
  - EYE IRRITATION [None]
